FAERS Safety Report 4619171-7 (Version None)
Quarter: 2005Q1

REPORT INFORMATION
  Report Type: 
  Country: None (occurrence: None)
  Receive Date: 20050317
  Receipt Date: 20050317
  Transmission Date: 20050727
  Serious: Yes (Life-Threatening, Hospitalization)
  Sender: FDA-Public Use
  Company Number: None

PATIENT
  Age: 57 Year
  Sex: Male

DRUGS (4)
  1. IBUPROFEN [Suspect]
     Indication: PAIN
     Dosage: QD  PO
     Route: 048
  2. ENALAPRIL MALEATE [Concomitant]
  3. OLANZAPINE [Concomitant]
  4. RANITIDINE HCL [Concomitant]

REACTIONS (5)
  - ALCOHOL USE [None]
  - DRUG ABUSER [None]
  - HAEMATOCRIT DECREASED [None]
  - PEPTIC ULCER [None]
  - UPPER GASTROINTESTINAL HAEMORRHAGE [None]
